FAERS Safety Report 8085688-9 (Version None)
Quarter: 2012Q1

REPORT INFORMATION
  Report Type: 
  Country: None (occurrence: None)
  Receive Date: 20120128
  Receipt Date: 20110404
  Transmission Date: 20120608
  Serious: No
  Sender: FDA-Public Use
  Company Number: US-ABBOTT-11P-163-0716402-00

PATIENT
  Age: 62 Year
  Sex: Female

DRUGS (11)
  1. PRAVASTATIN [Concomitant]
     Indication: BLOOD CHOLESTEROL INCREASED
  2. FENTANYL [Concomitant]
     Indication: PAIN
     Dosage: PATCHES CHANGED EVERY 2-3 DAYS
  3. HUMIRA [Suspect]
     Indication: PSORIATIC ARTHROPATHY
  4. METHOTREXATE [Concomitant]
     Indication: PRODUCT USED FOR UNKNOWN INDICATION
     Dosage: SHOT ONCE WEEKLY
  5. TRILIPIX [Concomitant]
     Indication: BLOOD TRIGLYCERIDES INCREASED
  6. FOLIC ACID [Concomitant]
     Indication: PRODUCT USED FOR UNKNOWN INDICATION
  7. OXYCONTIN [Concomitant]
     Indication: PAIN
  8. BONIVA [Concomitant]
     Indication: OSTEOPOROSIS
  9. CYMBALTA [Concomitant]
     Indication: DEPRESSION
  10. METFFORMIN HYDROCHLORIDE [Concomitant]
     Indication: DIABETES MELLITUS
  11. ZYRTEC [Concomitant]
     Indication: SEASONAL ALLERGY

REACTIONS (1)
  - INJECTION SITE PAIN [None]
